FAERS Safety Report 16971533 (Version 1)
Quarter: 2019Q4

REPORT INFORMATION
  Report Type: Spontaneous
  Country: DE (occurrence: DE)
  Receive Date: 20191029
  Receipt Date: 20191029
  Transmission Date: 20200122
  Serious: Yes (Other)
  Sender: FDA-Public Use
  Company Number: DE-CELGENEUS-DEU-20191007274

PATIENT
  Age: 55 Year
  Sex: Female
  Weight: 93 kg

DRUGS (11)
  1. MELOXICAM. [Concomitant]
     Active Substance: MELOXICAM
     Indication: OSTEOCHONDROSIS
     Dosage: 15 MILLIGRAM
     Route: 065
  2. PREGABALIN. [Concomitant]
     Active Substance: PREGABALIN
     Indication: NERVE INJURY
     Dosage: 25 MILLIGRAM
     Route: 065
  3. APONAL 5 ACEBERZOGENE [Concomitant]
     Indication: SLEEP DISORDER
     Dosage: 5 MILLIGRAM
     Route: 065
  4. DEKRISTOL [Concomitant]
     Active Substance: CHOLECALCIFEROL
     Indication: ARTHRITIS
     Dosage: 20000 IU (INTERNATIONAL UNIT)
     Route: 065
  5. DEKRISTOL [Concomitant]
     Active Substance: CHOLECALCIFEROL
     Indication: PSORIASIS
  6. PREDNISON [Concomitant]
     Active Substance: PREDNISONE
     Indication: PSORIASIS
  7. OTEZLA [Suspect]
     Active Substance: APREMILAST
     Indication: ARTHRITIS
  8. OTEZLA [Suspect]
     Active Substance: APREMILAST
     Indication: PSORIASIS
     Dosage: 60 MILLIGRAM
     Route: 048
     Dates: start: 20190429
  9. CANDECOR [Concomitant]
     Active Substance: CANDESARTAN CILEXETIL
     Indication: HYPERTENSION
     Dosage: 8 MG -0- 8 MG
     Route: 065
  10. PREDNISON [Concomitant]
     Active Substance: PREDNISONE
     Indication: ARTHRITIS
     Dosage: 2.5 MILLIGRAM
     Route: 065
  11. NOVAMINSULFON LICHTENSTEIN [Concomitant]
     Active Substance: METAMIZOLE SODIUM
     Indication: OSTEOARTHRITIS
     Dosage: 25 MILLIGRAM
     Route: 065

REACTIONS (5)
  - Exercise tolerance decreased [Recovered/Resolved]
  - Hypertension [Recovered/Resolved]
  - Restlessness [Recovered/Resolved]
  - Dyspnoea exertional [Recovered/Resolved]
  - Tachycardia [Recovered/Resolved]

NARRATIVE: CASE EVENT DATE: 20190429
